FAERS Safety Report 4299390-2 (Version None)
Quarter: 2004Q1

REPORT INFORMATION
  Report Type: 
  Country: None (occurrence: None)
  Receive Date: 20040217
  Receipt Date: 20040129
  Transmission Date: 20041129
  Serious: Yes (Hospitalization)
  Sender: FDA-Public Use
  Company Number: DSA_23811_2004

PATIENT
  Age: 38 Year
  Sex: Female

DRUGS (2)
  1. LORAZEPAM [Suspect]
     Dosage: 50 MG ONCE PO
     Route: 048
     Dates: start: 20040105, end: 20040105
  2. STANGYL [Suspect]
     Dosage: 2000 MG ONCE PO
     Route: 048
     Dates: start: 20040105, end: 20040105

REACTIONS (6)
  - BLOOD CREATINE PHOSPHOKINASE INCREASED [None]
  - COMA [None]
  - HYPOTHERMIA [None]
  - INTENTIONAL OVERDOSE [None]
  - MULTIPLE DRUG OVERDOSE [None]
  - MYDRIASIS [None]
